FAERS Safety Report 7826575-8 (Version None)
Quarter: 2011Q4

REPORT INFORMATION
  Report Type: 
  Country: None (occurrence: None)
  Receive Date: 20111020
  Receipt Date: 20111010
  Transmission Date: 20120403
  Serious: Yes (Hospitalization)
  Sender: FDA-Public Use
  Company Number: US-ELI_LILLY_AND_COMPANY-US201109002062

PATIENT
  Sex: Male
  Weight: 97.959 kg

DRUGS (11)
  1. METFORMIN HCL [Concomitant]
     Dosage: 1000 MG, BID
  2. LIPITOR [Concomitant]
     Dosage: 40 MG, QD
  3. LIPID MODIFYING AGENTS [Concomitant]
     Indication: BLOOD CHOLESTEROL
  4. VITAMIN D [Concomitant]
     Dosage: 1 DF, WEEKLY (1/W)
  5. CYMBALTA [Suspect]
     Indication: BACK PAIN
     Dosage: 60 MG, QD
     Route: 048
     Dates: start: 20080101, end: 20110909
  6. CELEBREX [Concomitant]
     Dosage: 200 MG, QD
  7. ACTOS [Concomitant]
     Dosage: 30 MG, QD
  8. TRICOR [Concomitant]
     Dosage: UNK, QD
  9. AMBIEN [Concomitant]
     Dosage: 5 MG, EACH EVENING
  10. LANTUS [Concomitant]
     Dosage: 46 U, QD
  11. DRUG USED IN DIABETES [Concomitant]
     Indication: DIABETES MELLITUS

REACTIONS (8)
  - VISION BLURRED [None]
  - HYPERHIDROSIS [None]
  - VERTIGO [None]
  - CHEST PAIN [None]
  - PALPITATIONS [None]
  - DRY MOUTH [None]
  - LIBIDO DECREASED [None]
  - MOBILITY DECREASED [None]
